FAERS Safety Report 8383524-4 (Version None)
Quarter: 2012Q1

REPORT INFORMATION
  Report Type: 
  Country: None (occurrence: None)
  Receive Date: 20120323
  Receipt Date: 20110613
  Transmission Date: 20120608
  Serious: Yes (Other)
  Sender: FDA-Public Use
  Company Number: 163-21880-11032584

PATIENT
  Age: 66 Year
  Sex: Female
  Weight: 102.5 kg

DRUGS (1)
  1. REVLIMID [Suspect]
     Indication: MULTIPLE MYELOMA
     Dosage: 25 MG, DAILY FOR 21 DAYS ON 7 DAYS OFF, PO 25 MG, DAILY FOR 14 DAYS, PO
     Route: 048
     Dates: start: 20100708

REACTIONS (2)
  - UPPER RESPIRATORY TRACT INFECTION [None]
  - NEUTROPHIL COUNT DECREASED [None]
